FAERS Safety Report 18915673 (Version 1)
Quarter: 2021Q1

REPORT INFORMATION
  Report Type: Spontaneous
  Country: US (occurrence: US)
  Receive Date: 20210219
  Receipt Date: 20210219
  Transmission Date: 20210420
  Serious: Yes (Hospitalization)
  Sender: FDA-Public Use
  Company Number: None

PATIENT
  Age: 3 Year
  Sex: Male
  Weight: 13.7 kg

DRUGS (6)
  1. ONCASPAR [Suspect]
     Active Substance: PEGASPARGASE
  2. MERCAPTOPURINE 1008MG [Suspect]
     Active Substance: MERCAPTOPURINE
  3. CYCLOPHOSPHAMIDE 1180MG [Suspect]
     Active Substance: CYCLOPHOSPHAMIDE
  4. METHOTREXATE 48MG [Suspect]
     Active Substance: METHOTREXATE
  5. VINCRISTINE SULFATE 3.56 MG [Suspect]
     Active Substance: VINCRISTINE SULFATE
  6. CYTARABINE 704MG [Suspect]
     Active Substance: CYTARABINE

REACTIONS (9)
  - Vomiting [None]
  - Diarrhoea [None]
  - Pancytopenia [None]
  - Dehydration [None]
  - Stomatitis [None]
  - Pyrexia [None]
  - Pancreatitis [None]
  - Abdominal pain lower [None]
  - Hypophagia [None]

NARRATIVE: CASE EVENT DATE: 20210204
